FAERS Safety Report 7670037-8 (Version None)
Quarter: 2011Q3

REPORT INFORMATION
  Report Type: 
  Country: None (occurrence: None)
  Receive Date: 20110808
  Receipt Date: 20110726
  Transmission Date: 20111222
  Serious: Yes (Hospitalization)
  Sender: FDA-Public Use
  Company Number: US-CELGENEUS-163-21880-11070199

PATIENT
  Sex: Male

DRUGS (3)
  1. QUINAPRIL HCL [Concomitant]
     Indication: BLOOD PRESSURE
     Dosage: DECREASED TO 1/2 TAB QD
     Route: 048
  2. REVLIMID [Suspect]
     Indication: MULTIPLE MYELOMA
     Dosage: 25 MILLIGRAM
     Route: 048
     Dates: start: 20110628
  3. DEXAMETHASONE [Concomitant]
     Dosage: DECREASED TO 5 TABS WEEKLY
     Route: 065

REACTIONS (5)
  - BLOOD GLUCOSE INCREASED [None]
  - SYNCOPE [None]
  - LABORATORY TEST ABNORMAL [None]
  - ANAEMIA [None]
  - DEHYDRATION [None]
